FAERS Safety Report 25474135 (Version 2)
Quarter: 2025Q3

REPORT INFORMATION
  Report Type: Spontaneous
  Country: JP (occurrence: JP)
  Receive Date: 20250624
  Receipt Date: 20250707
  Transmission Date: 20251021
  Serious: Yes (Other)
  Sender: ELI LILLY AND COMPANY
  Company Number: JP-NShinyaku-EVA202508318ZZLILLY

PATIENT
  Age: 85 Year
  Sex: Female

DRUGS (3)
  1. TADALAFIL [Suspect]
     Active Substance: TADALAFIL
     Indication: Pulmonary arterial hypertension
     Dosage: 20 MG, 2/M
     Route: 048
  2. UPTRAVI [Concomitant]
     Active Substance: SELEXIPAG
     Indication: Pulmonary arterial hypertension
     Route: 048
  3. OPSUMIT [Concomitant]
     Active Substance: MACITENTAN
     Indication: Pulmonary arterial hypertension
     Dosage: 10 MG, DAILY
     Route: 048

REACTIONS (6)
  - Anti-neutrophil cytoplasmic antibody positive vasculitis [Unknown]
  - Renal impairment [Recovered/Resolved]
  - Cardiac failure [Unknown]
  - Pneumonia [Unknown]
  - Blood creatinine increased [Unknown]
  - Tubulointerstitial nephritis [Recovering/Resolving]
